FAERS Safety Report 5317595-6 (Version None)
Quarter: 2007Q2

REPORT INFORMATION
  Report Type: 
  Country: None (occurrence: None)
  Receive Date: 20070507
  Receipt Date: 20070425
  Transmission Date: 20071010
  Serious: Yes (Hospitalization, Other)
  Sender: FDA-Public Use
  Company Number: PHBS2007NL05873

PATIENT
  Age: 61 Year
  Sex: Female

DRUGS (5)
  1. EMSELEX EXTENDED RELEASE [Suspect]
     Dosage: 7.5 MG/D
     Route: 065
     Dates: start: 20070322, end: 20070327
  2. ASCAL [Concomitant]
     Dosage: 100 MG/D
     Route: 065
  3. ATENOLOL [Concomitant]
     Dosage: 25 MG/D
     Route: 065
  4. CRESTOR [Concomitant]
     Dosage: 10 MG/D
     Route: 065
  5. LOSEC [Concomitant]
     Route: 065

REACTIONS (1)
  - TACHYCARDIA [None]
